FAERS Safety Report 15501233 (Version 1)
Quarter: 2018Q4

REPORT INFORMATION
  Report Type: Spontaneous
  Country: US (occurrence: US)
  Receive Date: 20181015
  Receipt Date: 20181015
  Transmission Date: 20190205
  Serious: Yes (Other)
  Sender: FDA-Public Use
  Company Number: US-SUNOVION-2018SUN003906

PATIENT
  Sex: Male
  Weight: 63.39 kg

DRUGS (6)
  1. SIMVASTATIN. [Concomitant]
     Active Substance: SIMVASTATIN
     Indication: BLOOD CHOLESTEROL ABNORMAL
     Dosage: 20 MG, QHS/PO
     Route: 048
  2. PROVIGIL [Concomitant]
     Active Substance: MODAFINIL
     Indication: ASTHENIA
     Dosage: 200MG, 2 TABS QD/PO
     Route: 048
  3. LATUDA [Suspect]
     Active Substance: LURASIDONE HYDROCHLORIDE
     Indication: DEPRESSION
     Dosage: 20 MG, 1 TAB QD/PO
     Route: 048
     Dates: start: 201809, end: 201810
  4. PARNATE [Concomitant]
     Active Substance: TRANYLCYPROMINE SULFATE
     Indication: DEPRESSION
     Dosage: 10MG,2 TABS TID/PO
     Route: 048
  5. XANAX [Concomitant]
     Active Substance: ALPRAZOLAM
     Dosage: 0.05MG QD/PO UP TO 5MG DAILY (1MG TOTAL TODAY THUS FAR)
     Route: 048
  6. LATUDA [Suspect]
     Active Substance: LURASIDONE HYDROCHLORIDE
     Dosage: 20MG, 1/2 TAB QHS/PO
     Route: 048
     Dates: start: 20181005

REACTIONS (4)
  - Fatigue [Not Recovered/Not Resolved]
  - Somnolence [Not Recovered/Not Resolved]
  - Off label use [Unknown]
  - Suicidal ideation [Unknown]
